FAERS Safety Report 7065237-4 (Version None)
Quarter: 2010Q4

REPORT INFORMATION
  Report Type: 
  Country: None (occurrence: None)
  Receive Date: 20101027
  Receipt Date: 20101018
  Transmission Date: 20110411
  Serious: Yes (Other)
  Sender: FDA-Public Use
  Company Number: BR-ROCHE-693125

PATIENT
  Sex: Female
  Weight: 66 kg

DRUGS (9)
  1. TOCILIZUMAB [Suspect]
     Indication: RHEUMATOID ARTHRITIS
     Dosage: FORM: INFUSION.
     Route: 065
     Dates: start: 20100118, end: 20100118
  2. TOCILIZUMAB [Suspect]
     Route: 065
     Dates: start: 20100212, end: 20100212
  3. TOCILIZUMAB [Suspect]
     Route: 065
     Dates: start: 20100312, end: 20100312
  4. TOCILIZUMAB [Suspect]
     Route: 065
     Dates: start: 20100412, end: 20100412
  5. TOCILIZUMAB [Suspect]
     Route: 065
     Dates: start: 20100712, end: 20100712
  6. TOCILIZUMAB [Suspect]
     Route: 065
     Dates: start: 20100812, end: 20100812
  7. RETEMIC [Concomitant]
     Indication: URINARY INCONTINENCE
  8. EUTHYROX [Concomitant]
     Indication: THYROID DISORDER
     Dosage: RECEIVED FOR A LONG TIME
  9. METHOTREXATE [Concomitant]
     Dosage: RECEIVED FOR A LONG TIME

REACTIONS (5)
  - ARTHRALGIA [None]
  - FATIGUE [None]
  - HALLUCINATION [None]
  - HEADACHE [None]
  - PAIN [None]
